FAERS Safety Report 17690884 (Version 7)
Quarter: 2021Q2

REPORT INFORMATION
  Report Type: Report from Study
  Country: None (occurrence: BE)
  Receive Date: 20200422
  Receipt Date: 20210406
  Transmission Date: 20210716
  Serious: Yes (Hospitalization)
  Sender: FDA-Public Use
  Company Number: BE-ABBVIE-20K-013-3373020-00

PATIENT
  Age: 74 Year
  Sex: Female

DRUGS (8)
  1. DUODOPA [Suspect]
     Active Substance: CARBIDOPA\LEVODOPA
     Dosage: DOSES CONTINUOUSLY MONITORED AND ADAPTED
     Route: 050
     Dates: start: 20101008, end: 20190913
  2. DUODOPA [Suspect]
     Active Substance: CARBIDOPA\LEVODOPA
     Dosage: MD=3ML, CD=1.7ML/HR DURING 16HRS, ED=1ML, ND=1.7ML/HR DURING 8HRS
     Route: 050
     Dates: start: 20190913, end: 20200209
  3. DUODOPA [Suspect]
     Active Substance: CARBIDOPA\LEVODOPA
     Dosage: MD=3ML, CD=1.6ML/HR DURING 16HRS, ED=1ML, ND=1.7ML/HR DURING?8HRS
     Route: 050
     Dates: start: 20200209, end: 20200420
  4. DUODOPA [Suspect]
     Active Substance: CARBIDOPA\LEVODOPA
     Dosage: MD=0ML, CD=1.7ML/HR DURING 16HRS, ED=1ML
     Route: 050
     Dates: start: 20200421, end: 20210331
  5. DUODOPA [Suspect]
     Active Substance: CARBIDOPA\LEVODOPA
     Dosage: MD= 0.0 ML, CD= 1.9 ML/HR DURING 16HRS, ED= 1.0ML
     Route: 050
     Dates: start: 20210331
  6. DUODOPA [Suspect]
     Active Substance: CARBIDOPA\LEVODOPA
     Dosage: MD=3ML, CD=1.7ML/HR DURING 16HRS, ED=1ML, ND=1.7ML/HR DURING?8HRS
     Route: 050
     Dates: start: 20200420, end: 20200421
  7. LEVODOPA BENSERAZIDE [Concomitant]
     Active Substance: BENSERAZIDE\LEVODOPA
     Indication: PRODUCT USED FOR UNKNOWN INDICATION
  8. DUODOPA [Suspect]
     Active Substance: CARBIDOPA\LEVODOPA
     Indication: PARKINSON^S DISEASE
     Dosage: MD=3.5ML, CD=1.6ML/HR DURING 16HRS, ED=1ML
     Route: 050
     Dates: start: 20101004, end: 20101008

REACTIONS (8)
  - Mobility decreased [Unknown]
  - Overdose [Unknown]
  - Bradykinesia [Unknown]
  - Fall [Recovered/Resolved]
  - Anxiety [Unknown]
  - Dyskinesia [Recovered/Resolved]
  - Freezing phenomenon [Unknown]
  - Dyskinesia [Unknown]

NARRATIVE: CASE EVENT DATE: 202004
